FAERS Safety Report 8307909-7 (Version None)
Quarter: 2012Q2

REPORT INFORMATION
  Report Type: 
  Country: None (occurrence: None)
  Receive Date: 20120424
  Receipt Date: 20120413
  Transmission Date: 20120825
  Serious: No
  Sender: FDA-Public Use
  Company Number: US-PFIZER INC-2012072805

PATIENT
  Sex: Female
  Weight: 85 kg

DRUGS (21)
  1. NEURONTIN [Suspect]
     Dosage: 100 MG, 6 PER DAY
  2. NEURONTIN [Suspect]
     Dosage: 300 MG, 1X/DAY (3 OF 100 MG ONCE A DAY)
  3. ATIVAN [Suspect]
     Indication: NEUROPATHY PERIPHERAL
     Dosage: UNK
  4. LIPIDIL [Concomitant]
     Dosage: UNK
  5. CARAC [Concomitant]
     Indication: ARRHYTHMIA
  6. NEURONTIN [Suspect]
     Indication: NEUROPATHY PERIPHERAL
     Dosage: 300 MG, 4X/DAY
     Route: 048
  7. NEURONTIN [Suspect]
     Dosage: 300 MG, UNK
     Route: 048
  8. CARAC [Concomitant]
     Indication: CARDIOMEGALY
     Dosage: UNK
  9. NEURONTIN [Suspect]
     Indication: NERVE INJURY
     Dosage: 700MG IN MORNING AND 300MG AT NIGHT
     Route: 048
  10. NEURONTIN [Suspect]
     Indication: SPINAL FRACTURE
     Dosage: UNK
     Route: 048
  11. KLONOPIN [Suspect]
     Indication: NEUROPATHY PERIPHERAL
     Dosage: 0.5 MG, 4X/DAY
  12. ZOCOR [Concomitant]
     Indication: BLOOD CHOLESTEROL INCREASED
     Dosage: UNK
  13. ACETAMINOPHEN [Concomitant]
     Dosage: UNK
  14. NEURONTIN [Suspect]
     Dosage: UNK
  15. SITAGLIPTIN AND METFORMIN HYDROCHLORIDE [Concomitant]
     Indication: TYPE 2 DIABETES MELLITUS
     Dosage: 500/50 MG, UNK
  16. ASPIRIN [Concomitant]
     Indication: ARRHYTHMIA
  17. CLONAZEPAM [Concomitant]
     Dosage: 0.5 MG, UNK
  18. NEURONTIN [Suspect]
     Indication: LUMBAR SPINAL STENOSIS
     Dosage: 500 MG, 2X/DAY
     Route: 048
  19. ASPIRIN [Concomitant]
     Indication: CARDIOMEGALY
     Dosage: UNK
  20. NEURONTIN [Suspect]
     Dosage: 300 MG, SIX OF THOSE A DAY
  21. COREG [Concomitant]
     Indication: HYPERTENSION
     Dosage: 10 MG

REACTIONS (28)
  - FEELING ABNORMAL [None]
  - HEADACHE [None]
  - HYPOGLYCAEMIA [None]
  - TREMOR [None]
  - CHEST PAIN [None]
  - HEART RATE INCREASED [None]
  - DIZZINESS [None]
  - FATIGUE [None]
  - HYPERSOMNIA [None]
  - DRY MOUTH [None]
  - NIGHTMARE [None]
  - MOVEMENT DISORDER [None]
  - EMOTIONAL DISORDER [None]
  - NAUSEA [None]
  - FEAR [None]
  - PYREXIA [None]
  - DECREASED APPETITE [None]
  - MALAISE [None]
  - PAIN [None]
  - IMPAIRED WORK ABILITY [None]
  - IRRITABILITY [None]
  - MIDDLE INSOMNIA [None]
  - SOMNOLENCE [None]
  - VISION BLURRED [None]
  - ASTHENIA [None]
  - LETHARGY [None]
  - DIARRHOEA [None]
  - AGITATION [None]
